FAERS Safety Report 6629075-6 (Version None)
Quarter: 2010Q1

REPORT INFORMATION
  Report Type: 
  Country: None (occurrence: None)
  Receive Date: 20100311
  Receipt Date: 20090812
  Transmission Date: 20100710
  Serious: No
  Sender: FDA-Public Use
  Company Number: US-BIOGENIDEC-2009BI025630

PATIENT
  Age: 46 Year
  Sex: Male

DRUGS (1)
  1. AVONEX [Suspect]
     Indication: MULTIPLE SCLEROSIS
     Route: 030
     Dates: start: 20041215

REACTIONS (9)
  - FATIGUE [None]
  - GENERAL SYMPTOM [None]
  - INJURY [None]
  - PAIN IN EXTREMITY [None]
  - PYREXIA [None]
  - STRESS [None]
  - TRANSIENT ISCHAEMIC ATTACK [None]
  - VISUAL IMPAIRMENT [None]
  - WEIGHT DECREASED [None]
